FAERS Safety Report 8935160 (Version 1)
Quarter: 2012Q4

REPORT INFORMATION
  Report Type: 
  Country: GB (occurrence: GB)
  Receive Date: 20121129
  Receipt Date: 20121129
  Transmission Date: 20130627
  Serious: Yes (Hospitalization, Other)
  Sender: FDA-Public Use
  Company Number: GB-PFIZER INC-2012296766

PATIENT
  Age: 31 Year
  Sex: Female
  Weight: 98.6 kg

DRUGS (5)
  1. GENOTROPIN [Suspect]
     Dosage: 0.8 mg, 1x/day, 7 injections/week
     Route: 058
     Dates: start: 20080915
  2. DESMOSPRAY [Concomitant]
     Indication: ADH DECREASED
     Dosage: UNK
     Dates: start: 20060607
  3. THYROXINE [Concomitant]
     Indication: THYROID DISORDER
     Dosage: UNK
     Dates: start: 20060717
  4. THYROXINE [Concomitant]
     Indication: PRIMARY HYPOTHYROIDISM
  5. DESMOTABS [Concomitant]
     Indication: ADH DECREASED
     Dosage: UNK
     Dates: start: 20060816

REACTIONS (1)
  - Abscess [Unknown]
